FAERS Safety Report 9764209 (Version 1)
Quarter: 2013Q4

REPORT INFORMATION
  Report Type: Spontaneous
  Country: US (occurrence: US)
  Receive Date: 20131216
  Receipt Date: 20131216
  Transmission Date: 20140711
  Serious: No
  Sender: FDA-Public Use
  Company Number: US-009507513-1312USA004267

PATIENT
  Age: 27 Year
  Sex: Female
  Weight: 109.75 kg

DRUGS (1)
  1. NEXPLANON [Suspect]
     Indication: CONTRACEPTION
     Route: 059

REACTIONS (3)
  - Metrorrhagia [Unknown]
  - Menorrhagia [Unknown]
  - Implant site pain [Unknown]
